FAERS Safety Report 4772749-2 (Version None)
Quarter: 2005Q3

REPORT INFORMATION
  Report Type: 
  Country: None (occurrence: None)
  Receive Date: 20050919
  Receipt Date: 20050316
  Transmission Date: 20060218
  Serious: Yes (Other)
  Sender: FDA-Public Use
  Company Number: JP-ROCHE-399542

PATIENT
  Age: 28 Year
  Sex: Female

DRUGS (4)
  1. TAMIFLU [Suspect]
     Route: 048
     Dates: start: 20050311, end: 20050313
  2. PL [Concomitant]
     Route: 048
     Dates: start: 20050311, end: 20050313
  3. HUSCODE [Concomitant]
     Route: 048
     Dates: start: 20050311
  4. MUCOSOLVAN [Concomitant]
     Route: 048
     Dates: start: 20050311

REACTIONS (3)
  - CONVULSION [None]
  - SYNCOPE [None]
  - SYNCOPE VASOVAGAL [None]
